FAERS Safety Report 4381320-6 (Version None)
Quarter: 2004Q2

REPORT INFORMATION
  Report Type: 
  Country: None (occurrence: None)
  Receive Date: 20040617
  Receipt Date: 20040617
  Transmission Date: 20050107
  Serious: Yes (Hospitalization)
  Sender: FDA-Public Use
  Company Number: None

PATIENT
  Age: 68 Year
  Sex: Female
  Weight: 51.7101 kg

DRUGS (2)
  1. LEUCOVORIN CALCIUM [Suspect]
     Indication: RECTAL CANCER
     Dosage: 500MG/M2 WEEKLY IV
     Route: 042
     Dates: start: 20040503, end: 20040601
  2. FLUOROURACIL [Suspect]
     Indication: RECTAL CANCER
     Dosage: 500MG/M2 WEEKLY IVP
     Route: 042
     Dates: start: 20040503, end: 20040601

REACTIONS (2)
  - ABDOMINAL PAIN [None]
  - POST PROCEDURAL DIARRHOEA [None]
